FAERS Safety Report 16379664 (Version 5)
Quarter: 2019Q3

REPORT INFORMATION
  Report Type: Spontaneous
  Country: DK (occurrence: DK)
  Receive Date: 20190531
  Receipt Date: 20190927
  Transmission Date: 20191004
  Serious: Yes (Life-Threatening, Hospitalization, Other)
  Sender: FDA-Public Use
  Company Number: PHHY2019DK126514

PATIENT
  Age: 19 Year
  Sex: Female

DRUGS (2)
  1. PARACETAMOL [Suspect]
     Active Substance: ACETAMINOPHEN
     Indication: ARTHRALGIA
     Dosage: 7 G, QD (14 TABLETS WITH A LARGE QUANTITY OF ALCOHOL)
     Route: 065
  2. PARACETAMOL [Suspect]
     Active Substance: ACETAMINOPHEN
     Dosage: UNK (100 TABLETS PARACETAMOL, THAT WAS PRESCRIBED FOR PAIN CONTROL AS NEEDED FOR KNEE PAIN)
     Route: 048

REACTIONS (9)
  - Overdose [Recovered/Resolved]
  - Nephropathy toxic [Recovered/Resolved]
  - Abdominal pain [Recovered/Resolved]
  - Pollakiuria [Recovered/Resolved]
  - Acute kidney injury [Recovered/Resolved]
  - Vomiting [Recovered/Resolved]
  - Nausea [Recovered/Resolved]
  - Toxicity to various agents [Recovered/Resolved]
  - Intentional overdose [Recovered/Resolved]

NARRATIVE: CASE EVENT DATE: 201808
